FAERS Safety Report 17909694 (Version 1)
Quarter: 2020Q2

REPORT INFORMATION
  Report Type: Spontaneous
  Country: JP (occurrence: JP)
  Receive Date: 20200617
  Receipt Date: 20200617
  Transmission Date: 20200714
  Serious: Yes (Hospitalization, Other)
  Sender: FDA-Public Use
  Company Number: JP-GLAXOSMITHKLINE-JP2020JPN094412

PATIENT
  Age: 69 Year
  Sex: Male

DRUGS (2)
  1. LAMICTAL [Suspect]
     Active Substance: LAMOTRIGINE
     Dosage: INCREASED ACCORDING TO THE PROTOCOL
     Route: 048
  2. LAMICTAL [Suspect]
     Active Substance: LAMOTRIGINE
     Indication: POST STROKE EPILEPSY
     Dosage: UNK
     Route: 048

REACTIONS (5)
  - Lung disorder [Recovering/Resolving]
  - Rash [Recovered/Resolved]
  - Drug reaction with eosinophilia and systemic symptoms [Unknown]
  - Pyrexia [Recovering/Resolving]
  - Eosinophilia [Unknown]
